FAERS Safety Report 20512502 (Version 2)
Quarter: 2022Q1

REPORT INFORMATION
  Report Type: Spontaneous
  Country: BR (occurrence: BR)
  Receive Date: 20220224
  Receipt Date: 20220307
  Transmission Date: 20220423
  Serious: Yes (Other)
  Sender: FDA-Public Use
  Company Number: BR-PFIZER INC-202200266428

PATIENT
  Age: 10 Month
  Sex: Male
  Weight: 7.13 kg

DRUGS (16)
  1. TIGECYCLINE [Suspect]
     Active Substance: TIGECYCLINE
     Indication: Device related bacteraemia
     Dosage: 10.5 MG, 2X/DAY
     Dates: start: 20220104, end: 20220117
  2. TIGECYCLINE [Suspect]
     Active Substance: TIGECYCLINE
     Dosage: 10.5 MG, 2X/DAY
     Dates: start: 20220104, end: 20220117
  3. TIGECYCLINE [Suspect]
     Active Substance: TIGECYCLINE
     Dosage: 10.5 MG, 2X/DAY
     Dates: start: 20220104, end: 20220117
  4. FUROSEMIDE [Concomitant]
     Active Substance: FUROSEMIDE
     Dosage: 9 MG
  5. METHADONE [Concomitant]
     Active Substance: METHADONE HYDROCHLORIDE
     Dosage: 5 MG
  6. BROMOPRIDA [Concomitant]
     Dosage: 2.5 MG
  7. DEXAMETHASONE [Concomitant]
     Active Substance: DEXAMETHASONE
     Dosage: 1.5 MG
  8. VANCOMYCIN [Concomitant]
     Active Substance: VANCOMYCIN
     Indication: Sepsis
     Dosage: 195 MG
  9. MEROPENEM [Concomitant]
     Active Substance: MEROPENEM
     Indication: Sepsis
     Dosage: 350 MG
  10. ONDANSETRON [Concomitant]
     Active Substance: ONDANSETRON
     Dosage: 1.5 MG
  11. OMEPRAZOLE [Concomitant]
     Active Substance: OMEPRAZOLE
     Dosage: 10 MG
  12. LORAZEPAM [Concomitant]
     Active Substance: LORAZEPAM
     Dosage: 2 MG
  13. MICAFUNGIN [Concomitant]
     Active Substance: MICAFUNGIN
     Indication: Pneumonia
     Dosage: 18 MG
  14. PHENOBARBITAL [Concomitant]
     Active Substance: PHENOBARBITAL
     Dosage: 15 MG
  15. LEVOFLOXACIN [Concomitant]
     Active Substance: LEVOFLOXACIN
     Indication: Bacteraemia
     Dosage: 90 MG
  16. HYDROCORTISONE [Concomitant]
     Active Substance: HYDROCORTISONE
     Dosage: 40 MG

REACTIONS (8)
  - Gamma-glutamyltransferase increased [Not Recovered/Not Resolved]
  - Alanine aminotransferase increased [Unknown]
  - Aspartate aminotransferase increased [Unknown]
  - Prothrombin time shortened [Unknown]
  - Blood alkaline phosphatase increased [Unknown]
  - Hepatomegaly [Unknown]
  - Product preparation issue [Unknown]
  - Off label use [Unknown]

NARRATIVE: CASE EVENT DATE: 20220104
